FAERS Safety Report 6649580-6 (Version None)
Quarter: 2010Q1

REPORT INFORMATION
  Report Type: 
  Country: None (occurrence: None)
  Receive Date: 20100324
  Receipt Date: 20100319
  Transmission Date: 20100710
  Serious: Yes (Other)
  Sender: FDA-Public Use
  Company Number: GB-MERCK-1003GBR00116

PATIENT
  Age: 88 Year
  Sex: Male

DRUGS (10)
  1. JANUVIA [Suspect]
     Route: 048
     Dates: end: 20100225
  2. ASPIRIN [Concomitant]
     Indication: CARDIOVASCULAR EVENT PROPHYLAXIS
     Route: 048
  3. CALCICHEW [Concomitant]
     Route: 065
  4. FERROUS FUMARATE [Concomitant]
     Route: 065
  5. ISOSORBIDE MONONITRATE [Concomitant]
     Route: 065
  6. KEPPRA [Concomitant]
     Indication: EPILEPSY
     Route: 048
  7. LANSOPRAZOLE [Concomitant]
     Indication: ABDOMINAL DISCOMFORT
     Route: 048
  8. METFORMIN [Concomitant]
     Route: 065
  9. PHENYTOIN [Concomitant]
     Indication: EPILEPSY
     Route: 048
  10. SIMVASTATIN [Concomitant]
     Route: 048

REACTIONS (1)
  - EPILEPSY [None]
